FAERS Safety Report 23316713 (Version 4)
Quarter: 2024Q4

REPORT INFORMATION
  Report Type: Spontaneous
  Country: US (occurrence: US)
  Receive Date: 20231219
  Receipt Date: 20241026
  Transmission Date: 20250115
  Serious: No
  Sender: ROCHE
  Company Number: US-ROCHE-3388443

PATIENT
  Age: 37 Year
  Sex: Male

DRUGS (2)
  1. HEMLIBRA [Suspect]
     Active Substance: EMICIZUMAB-KXWH
     Indication: Factor VIII deficiency
     Dosage: STRENGTH-150MG/ML
     Route: 058
     Dates: start: 202303
  2. HEMLIBRA [Suspect]
     Active Substance: EMICIZUMAB-KXWH
     Dosage: STRENGTH-300MG/2ML
     Route: 058
     Dates: start: 202303

REACTIONS (5)
  - Arthralgia [Unknown]
  - Joint swelling [Unknown]
  - Haemorrhage [Recovered/Resolved]
  - Limb injury [Unknown]
  - Haemorrhage [Recovered/Resolved]

NARRATIVE: CASE EVENT DATE: 20241003
